FAERS Safety Report 20203369 (Version 1)
Quarter: 2021Q4

REPORT INFORMATION
  Report Type: Spontaneous
  Country: NL (occurrence: NL)
  Receive Date: 20211218
  Receipt Date: 20211218
  Transmission Date: 20220303
  Serious: Yes (Other)
  Sender: FDA-Public Use
  Company Number: NL-LUPIN PHARMACEUTICALS INC.-2021-24979

PATIENT
  Age: 45 Year
  Sex: Male

DRUGS (16)
  1. CLONIDINE [Suspect]
     Active Substance: CLONIDINE
     Indication: Drug withdrawal syndrome
     Dosage: 1 MICROGRAM/KILOGRAMP PER HOUR
     Route: 042
  2. OLANZAPINE [Suspect]
     Active Substance: OLANZAPINE
     Indication: Drug withdrawal syndrome
     Dosage: UNK
     Route: 065
  3. BACLOFEN [Suspect]
     Active Substance: BACLOFEN
     Indication: Drug withdrawal syndrome
     Dosage: 20 MILLIGRAM, TID
     Route: 042
  4. DIAZEPAM [Suspect]
     Active Substance: DIAZEPAM
     Indication: Drug withdrawal syndrome
     Dosage: 30 MILLIGRAM, QD
     Route: 065
  5. DIAZEPAM [Suspect]
     Active Substance: DIAZEPAM
     Dosage: 300 MILLIGRAM
     Route: 065
  6. DIAZEPAM [Suspect]
     Active Substance: DIAZEPAM
     Dosage: 15 MILLIGRAM
     Route: 065
  7. MIDAZOLAM [Suspect]
     Active Substance: MIDAZOLAM
     Indication: Drug withdrawal syndrome
     Dosage: 30 MILLIGRAM PER HOUR
     Route: 042
  8. MIDAZOLAM [Suspect]
     Active Substance: MIDAZOLAM
     Dosage: 10 MILLIGRAM PER HOUR
     Route: 042
  9. PROPOFOL [Suspect]
     Active Substance: PROPOFOL
     Indication: Drug withdrawal syndrome
     Dosage: 300 MILLIGRAM PER HOUR
     Route: 042
  10. OXYBATE [Suspect]
     Active Substance: OXYBATE
     Indication: Drug withdrawal syndrome
     Dosage: UNK, DOSE-10-15 ML PER HOUR; HAD USED 40 ML OF UNKNOWN CONCENTRATION EVERY HOUR 48H PRIOR ADMISSION
     Route: 048
  11. OXYBATE [Suspect]
     Active Substance: OXYBATE
     Dosage: 6 GRAM  (SODIUM OXYBATE; 500 MG GHB/ML)
     Route: 048
  12. OXYBATE [Suspect]
     Active Substance: OXYBATE
     Dosage: 10 GRAM EVERY 2 HOUR
     Route: 065
  13. OXYBATE [Suspect]
     Active Substance: OXYBATE
     Dosage: 20 GRAM EVERY 2 HOUR
     Route: 065
  14. OXYBATE [Suspect]
     Active Substance: OXYBATE
     Dosage: 10 GRAM EVERY 2 HOUR
     Route: 065
  15. THIAMINE [Concomitant]
     Active Substance: THIAMINE
     Indication: Prophylaxis
     Dosage: 250 MILLIGRAM
     Route: 042
  16. MAGNESIUM SULFATE [Concomitant]
     Active Substance: MAGNESIUM SULFATE
     Indication: Constipation prophylaxis
     Dosage: 15 GRAM, QD
     Route: 065

REACTIONS (1)
  - Multiple-drug resistance [Unknown]
